FAERS Safety Report 7770189-5 (Version None)
Quarter: 2011Q3

REPORT INFORMATION
  Report Type: 
  Country: None (occurrence: None)
  Receive Date: 20110922
  Receipt Date: 20100921
  Transmission Date: 20111222
  Serious: No
  Sender: FDA-Public Use
  Company Number: US-ASTRAZENECA-2010SE44395

PATIENT
  Sex: Female
  Weight: 55.3 kg

DRUGS (3)
  1. SEROQUEL [Suspect]
     Indication: TACHYPHRENIA
     Route: 048
  2. SEROQUEL [Suspect]
     Indication: BIPOLAR DISORDER
     Route: 048
  3. SEROQUEL [Suspect]
     Indication: SLEEP DISORDER
     Route: 048

REACTIONS (3)
  - INSOMNIA [None]
  - ACTIVITIES OF DAILY LIVING IMPAIRED [None]
  - DRUG DOSE OMISSION [None]
